FAERS Safety Report 4659179-9 (Version None)
Quarter: 2005Q2

REPORT INFORMATION
  Report Type: 
  Country: None (occurrence: None)
  Receive Date: 20050502
  Receipt Date: 20050202
  Transmission Date: 20051028
  Serious: No
  Sender: FDA-Public Use
  Company Number: 200419668US

PATIENT
  Age: 41 Year
  Sex: Male

DRUGS (4)
  1. KETEK [Suspect]
     Indication: SINUSITIS
     Dosage: 800 MG QD PO
     Route: 048
     Dates: start: 20041129, end: 20041203
  2. FLUTICASONE PROPIONATE (FLONASE) [Concomitant]
  3. ASPIRIN [Concomitant]
  4. TYLENOL [Concomitant]

REACTIONS (2)
  - EYE MOVEMENT DISORDER [None]
  - LACRIMATION INCREASED [None]
